FAERS Safety Report 4991555-7 (Version None)
Quarter: 2006Q2

REPORT INFORMATION
  Report Type: 
  Country: None (occurrence: None)
  Receive Date: 20060502
  Receipt Date: 20060419
  Transmission Date: 20061013
  Serious: Yes (Disabling)
  Sender: FDA-Public Use
  Company Number: 200610894BCC

PATIENT
  Age: 64 Year
  Sex: Male
  Weight: 92.0802 kg

DRUGS (5)
  1. ALEVE [Suspect]
     Indication: ARTHRALGIA
     Dosage: 220 MG, QD, ORAL
     Route: 048
     Dates: start: 20060226, end: 20060227
  2. ALEVE [Suspect]
     Indication: ERYTHEMA
     Dosage: 220 MG, QD, ORAL
     Route: 048
     Dates: start: 20060226, end: 20060227
  3. ALEVE [Suspect]
     Indication: JOINT SWELLING
     Dosage: 220 MG, QD, ORAL
     Route: 048
     Dates: start: 20060226, end: 20060227
  4. ASPIRIN [Suspect]
     Indication: RHEUMATOID ARTHRITIS
     Dosage: IRR, ORAL
     Route: 048
     Dates: start: 19990101
  5. CEPHALOTHIN [Concomitant]

REACTIONS (12)
  - ARTHROPATHY [None]
  - CHRONIC FATIGUE SYNDROME [None]
  - DRUG INEFFECTIVE [None]
  - ERYTHEMA [None]
  - HEADACHE [None]
  - JOINT SWELLING [None]
  - LIGAMENT DISORDER [None]
  - MOVEMENT DISORDER [None]
  - OEDEMA PERIPHERAL [None]
  - STAPHYLOCOCCAL INFECTION [None]
  - TENDON DISORDER [None]
  - TINNITUS [None]
